FAERS Safety Report 19908223 (Version 1)
Quarter: 2021Q4

REPORT INFORMATION
  Report Type: Spontaneous
  Country: DE (occurrence: DE)
  Receive Date: 20211001
  Receipt Date: 20211001
  Transmission Date: 20220303
  Serious: Yes (Life-Threatening, Hospitalization)
  Sender: FDA-Public Use
  Company Number: DE-DCGMA-21187787

PATIENT
  Age: 14 Year
  Sex: Male
  Weight: 110 kg

DRUGS (9)
  1. HALOPERIDOL [Suspect]
     Active Substance: HALOPERIDOL
     Indication: Aggression
     Dosage: 5 MG
     Route: 042
     Dates: start: 20210122, end: 20210122
  2. DANTROLENE SODIUM [Concomitant]
     Active Substance: DANTROLENE SODIUM
  3. CEFOTAXIME [Concomitant]
     Active Substance: CEFOTAXIME SODIUM
  4. MIDAZOLAM [Concomitant]
     Active Substance: MIDAZOLAM
  5. INSULIN NOS [Concomitant]
     Active Substance: INSULIN NOS
  6. propofol 1% [Concomitant]
  7. METAMIZOLE [Concomitant]
     Active Substance: METAMIZOLE
  8. PANTOPRAZOLE SODIUM [Concomitant]
     Active Substance: PANTOPRAZOLE SODIUM
  9. CLONIDINE [Concomitant]
     Active Substance: CLONIDINE

REACTIONS (1)
  - Neuroleptic malignant syndrome [Recovered/Resolved]

NARRATIVE: CASE EVENT DATE: 20210122
